FAERS Safety Report 10716905 (Version 6)
Quarter: 2016Q2

REPORT INFORMATION
  Report Type: Report from Study
  Country: BR (occurrence: BR)
  Receive Date: 20150116
  Receipt Date: 20160413
  Transmission Date: 20160815
  Serious: Yes (Other)
  Sender: FDA-Public Use
  Company Number: PHHY2015BR004411

PATIENT
  Age: 64 Year
  Sex: Male
  Weight: 93 kg

DRUGS (10)
  1. ATENOLOL. [Concomitant]
     Active Substance: ATENOLOL
     Indication: HYPERTENSION
     Dosage: 1 DF, BID (IN THE MORNING AND AT NIGHT)
     Route: 065
     Dates: start: 2006
  2. SINVASTATINA [Concomitant]
     Active Substance: SIMVASTATIN
     Indication: BLOOD TRIGLYCERIDES INCREASED
     Dosage: 1 DF, QHS
     Route: 065
     Dates: start: 2006
  3. SINVASTATINA [Concomitant]
     Active Substance: SIMVASTATIN
     Dosage: 1 DF, QD
     Route: 048
     Dates: start: 2012
  4. AAS [Concomitant]
     Active Substance: ASPIRIN
     Dosage: 1 DF, QD
     Route: 048
     Dates: start: 2012
  5. SANDOSTATIN LAR DEPOT [Suspect]
     Active Substance: OCTREOTIDE ACETATE
     Indication: HEPATIC NEOPLASM
     Dosage: 10 MG, UNK
     Route: 030
     Dates: start: 2013
  6. SANDOSTATIN LAR DEPOT [Suspect]
     Active Substance: OCTREOTIDE ACETATE
     Dosage: 20 MG, UNK
     Route: 030
     Dates: start: 201411
  7. SANDOSTATIN LAR DEPOT [Suspect]
     Active Substance: OCTREOTIDE ACETATE
     Dosage: 20 MG, QMO
     Route: 030
  8. AAS [Concomitant]
     Active Substance: ASPIRIN
     Indication: ANTICOAGULANT THERAPY
     Dosage: 1 DF, QD (AFTER THE LUNCH)
     Route: 065
     Dates: start: 2006
  9. SANDOSTATIN LAR DEPOT [Suspect]
     Active Substance: OCTREOTIDE ACETATE
     Dosage: 1 DF (20MG), EVERY 25/30 DAYS
     Route: 030
  10. ATENOLOL. [Concomitant]
     Active Substance: ATENOLOL
     Dosage: 2 DF, QD
     Route: 048
     Dates: start: 2012

REACTIONS (8)
  - Memory impairment [Unknown]
  - Diarrhoea [Not Recovered/Not Resolved]
  - Needle issue [Unknown]
  - Sleep disorder [Unknown]
  - Malignant neoplasm progression [Not Recovered/Not Resolved]
  - Arteriosclerosis coronary artery [Not Recovered/Not Resolved]
  - Inappropriate schedule of drug administration [Unknown]
  - Underdose [Unknown]

NARRATIVE: CASE EVENT DATE: 201411
